FAERS Safety Report 4518083-7 (Version None)
Quarter: 2004Q4

REPORT INFORMATION
  Report Type: 
  Country: None (occurrence: None)
  Receive Date: 20041203
  Receipt Date: 20041123
  Transmission Date: 20050328
  Serious: Yes (Other)
  Sender: FDA-Public Use
  Company Number: CN-GLAXOSMITHKLINE-B0358838A

PATIENT
  Age: 26 Year
  Sex: Female

DRUGS (2)
  1. HEPTODIN [Suspect]
     Indication: HEPATITIS B
     Dosage: 100MG FOUR TIMES PER DAY
     Route: 048
     Dates: start: 20040601
  2. NO CONCURRENT MEDICATIONS [Concomitant]

REACTIONS (1)
  - HEPATIC PAIN [None]
